FAERS Safety Report 17875266 (Version 2)
Quarter: 2020Q3

REPORT INFORMATION
  Report Type: Spontaneous
  Country: MX (occurrence: MX)
  Receive Date: 20200609
  Receipt Date: 20200914
  Transmission Date: 20201103
  Serious: Yes (Other)
  Sender: FDA-Public Use
  Company Number: MX-009507513-2006MEX002408

PATIENT
  Sex: Male

DRUGS (1)
  1. KEYTRUDA [Suspect]
     Active Substance: PEMBROLIZUMAB
     Indication: LUNG NEOPLASM MALIGNANT
     Dates: end: 202002

REACTIONS (5)
  - Drowning [Unknown]
  - Dyspnoea [Unknown]
  - Product container issue [Unknown]
  - Suspected counterfeit product [Unknown]
  - Complication associated with device [Unknown]

NARRATIVE: CASE EVENT DATE: 202002
